FAERS Safety Report 26139376 (Version 1)
Quarter: 2025Q4

REPORT INFORMATION
  Report Type: Report from Study
  Country: CA (occurrence: CA)
  Receive Date: 20251210
  Receipt Date: 20251210
  Transmission Date: 20260118
  Serious: Yes (Hospitalization, Other)
  Sender: TAKEDA
  Company Number: CA-TAKEDA-2025TUS072187

PATIENT
  Age: 74 Year
  Sex: Male

DRUGS (12)
  1. TEDUGLUTIDE [Suspect]
     Active Substance: TEDUGLUTIDE
     Indication: Short-bowel syndrome
     Dosage: 3.42 MILLIGRAM, QD
     Dates: start: 20250805
  2. TEDUGLUTIDE [Suspect]
     Active Substance: TEDUGLUTIDE
     Dosage: 1.7 MILLIGRAM, QD
  3. TEDUGLUTIDE [Suspect]
     Active Substance: TEDUGLUTIDE
     Dosage: 1.7 MILLIGRAM, QD
  4. TEDUGLUTIDE [Suspect]
     Active Substance: TEDUGLUTIDE
     Dosage: 1.7 MILLIGRAM, QD
  5. TELMISARTAN [Concomitant]
     Active Substance: TELMISARTAN
     Dosage: UNK
  6. CALCIUM [Concomitant]
     Active Substance: CALCIUM
     Dosage: UNK
  7. VITAMIN D NOS [Concomitant]
     Active Substance: CHOLECALCIFEROL\ERGOCALCIFEROL
     Dosage: UNK
  8. PANTOPRAZOLE SODIUM [Concomitant]
     Active Substance: PANTOPRAZOLE SODIUM
     Dosage: UNK
  9. SODIUM PHOSPHATE [Concomitant]
     Active Substance: SODIUM PHOSPHATE
     Dosage: UNK
  10. TPN [Concomitant]
     Active Substance: AMINO ACIDS\DEXTROSE\ELECTROLYTES NOS\SOYBEAN OIL
     Dosage: 3200 MILLILITER, QOD
     Dates: start: 202002
  11. TPN [Concomitant]
     Active Substance: AMINO ACIDS\DEXTROSE\ELECTROLYTES NOS\SOYBEAN OIL
     Dosage: 3200 MILLILITER, QOD
     Dates: start: 20240522
  12. TPN [Concomitant]
     Active Substance: AMINO ACIDS\DEXTROSE\ELECTROLYTES NOS\SOYBEAN OIL
     Dosage: 2900 MILLILITER, QOD
     Dates: start: 202509

REACTIONS (12)
  - Hepatic cirrhosis [Unknown]
  - Intestinal obstruction [Unknown]
  - Dyspepsia [Unknown]
  - Product dose omission issue [Unknown]
  - Blood pressure increased [Unknown]
  - Urine output increased [Unknown]
  - Abnormal faeces [Unknown]
  - Muscle spasms [Unknown]
  - Gastrointestinal stoma complication [Unknown]
  - Abdominal pain upper [Recovered/Resolved]
  - Gastrooesophageal reflux disease [Unknown]
  - Eating disorder [Unknown]

NARRATIVE: CASE EVENT DATE: 20250809
